FAERS Safety Report 14030145 (Version 4)
Quarter: 2019Q1

REPORT INFORMATION
  Report Type: Report from Study
  Country: US (occurrence: US)
  Receive Date: 20171002
  Receipt Date: 20190129
  Transmission Date: 20190417
  Serious: Yes (Hospitalization)
  Sender: FDA-Public Use
  Company Number: US-ACTELION-A-US2017-149058

PATIENT
  Age: 16 Month
  Sex: Male

DRUGS (12)
  1. SILDENAFIL. [Concomitant]
     Active Substance: SILDENAFIL
     Dosage: 20 MG, UNK
  2. RANITIDINE. [Concomitant]
     Active Substance: RANITIDINE
     Dosage: 150 MG, UNK
  3. TRACLEER [Suspect]
     Active Substance: BOSENTAN
     Dosage: 1/4 TABLET, BID
     Route: 048
     Dates: start: 20160524
  4. ENALAPRIL [Concomitant]
     Active Substance: ENALAPRIL
     Dosage: 2.5 MG, UNK
  5. ASPIRIN. [Concomitant]
     Active Substance: ASPIRIN
     Dosage: 81 MG, UNK
  6. FUROSEMIDE. [Concomitant]
     Active Substance: FUROSEMIDE
  7. SPIRONOLACTONE. [Concomitant]
     Active Substance: SPIRONOLACTONE
     Dosage: 25 MG, UNK
  8. AMOXICILLIN. [Concomitant]
     Active Substance: AMOXICILLIN
  9. TRACLEER [Suspect]
     Active Substance: BOSENTAN
     Indication: PULMONARY ARTERIAL HYPERTENSION
     Dosage: 15.62 MG, BID
     Route: 048
     Dates: start: 20160524
  10. LASIX [Concomitant]
     Active Substance: FUROSEMIDE
     Dosage: 20 MG, UNK
  11. EPANED [Concomitant]
     Active Substance: ENALAPRIL MALEATE
  12. TYLENOL [Concomitant]
     Active Substance: ACETAMINOPHEN
     Dosage: 500 MG, UNK

REACTIONS (11)
  - Cardiac disorder [Not Recovered/Not Resolved]
  - Fall [Unknown]
  - Suture insertion [Unknown]
  - Gastrointestinal tube insertion [Recovered/Resolved]
  - Rhinovirus infection [Recovered/Resolved]
  - Respiratory syncytial virus infection [Recovered/Resolved]
  - Respiratory distress [Recovered/Resolved]
  - Pneumonia [Recovered/Resolved]
  - Respiratory disorder [Not Recovered/Not Resolved]
  - Viral infection [Not Recovered/Not Resolved]
  - Product dose omission [Unknown]

NARRATIVE: CASE EVENT DATE: 20170921
